FAERS Safety Report 12711813 (Version 2)
Quarter: 2016Q4

REPORT INFORMATION
  Report Type: Spontaneous
  Country: None (occurrence: CO)
  Receive Date: 20160902
  Receipt Date: 20161011
  Transmission Date: 20170207
  Serious: Yes (Other)
  Sender: FDA-Public Use
  Company Number: CO-MERCK KGAA-1056985

PATIENT

DRUGS (1)
  1. NOVOTHYROX [Suspect]
     Active Substance: LEVOTHYROXINE SODIUM

REACTIONS (10)
  - Gastrooesophageal reflux disease [None]
  - Fluid retention [None]
  - Insomnia [None]
  - Arrhythmia [None]
  - Hypothyroidism [None]
  - Performance status decreased [None]
  - Hyperkeratosis [None]
  - Eye swelling [None]
  - Dyspnoea [None]
  - Supraventricular tachycardia [None]
